FAERS Safety Report 17032888 (Version 1)
Quarter: 2019Q4

REPORT INFORMATION
  Report Type: Spontaneous
  Country: US (occurrence: US)
  Receive Date: 20191114
  Receipt Date: 20191114
  Transmission Date: 20200122
  Serious: Yes (Other)
  Sender: FDA-Public Use
  Company Number: US-SA-2019SA313131

PATIENT
  Sex: Male

DRUGS (1)
  1. BCG FOR IMMUNOTHERAPY [Suspect]
     Active Substance: BACILLUS CALMETTE-GUERIN ANTIGEN, UNSPECIFIED SUBSTRAIN
     Indication: BLADDER CANCER
     Dosage: UNK
     Route: 043

REACTIONS (6)
  - Sepsis [Unknown]
  - Haematuria [Unknown]
  - Disseminated Bacillus Calmette-Guerin infection [Unknown]
  - Disseminated tuberculosis [Unknown]
  - Pyrexia [Unknown]
  - Dysuria [Unknown]
